FAERS Safety Report 9556108 (Version 1)
Quarter: 2013Q3

REPORT INFORMATION
  Report Type: Spontaneous
  Country: US (occurrence: US)
  Receive Date: 20130926
  Receipt Date: 20130926
  Transmission Date: 20140515
  Serious: Yes (Other)
  Sender: FDA-Public Use
  Company Number: US-TEVA-434399USA

PATIENT
  Sex: Female

DRUGS (1)
  1. CLONAZEPAM [Suspect]

REACTIONS (4)
  - Coeliac disease [Unknown]
  - Neuropathy peripheral [Unknown]
  - Myalgia [Unknown]
  - Pain [Unknown]
